FAERS Safety Report 25872114 (Version 1)
Quarter: 2025Q4

REPORT INFORMATION
  Report Type: Report from Study
  Country: US (occurrence: US)
  Receive Date: 20251002
  Receipt Date: 20251002
  Transmission Date: 20260117
  Serious: Yes (Other)
  Sender: UCB
  Company Number: US-UCBSA-2025024564

PATIENT
  Age: 28 Year
  Sex: Female

DRUGS (4)
  1. FINTEPLA [Suspect]
     Active Substance: FENFLURAMINE
     Indication: Lennox-Gastaut syndrome
     Dosage: UNK
     Dates: start: 20231121
  2. FINTEPLA [Suspect]
     Active Substance: FENFLURAMINE
     Dosage: 2 MILLILITER, 2X/DAY (BID)
     Dates: start: 20240220
  3. FINTEPLA [Suspect]
     Active Substance: FENFLURAMINE
     Dosage: 1 MILLILITER, 2X/DAY (BID)
  4. FINTEPLA [Suspect]
     Active Substance: FENFLURAMINE
     Dosage: 1 MG/KG/DAY TO A TOTAL OF DOSE OF 2 MG/DAY

REACTIONS (2)
  - Seizure [Not Recovered/Not Resolved]
  - Mitral valve thickening [Unknown]

NARRATIVE: CASE EVENT DATE: 20250822
